FAERS Safety Report 5653837-5 (Version None)
Quarter: 2008Q1

REPORT INFORMATION
  Report Type: 
  Country: None (occurrence: None)
  Receive Date: 20080306
  Receipt Date: 20080226
  Transmission Date: 20080703
  Serious: Yes (Hospitalization, Other)
  Sender: FDA-Public Use
  Company Number: US-PURDUE-USA_2007_0030680

PATIENT
  Age: 42 Year
  Sex: Female

DRUGS (10)
  1. OXYCONTIN [Suspect]
     Indication: BACK PAIN
     Dosage: 20 MG, BID
     Dates: start: 20020101, end: 20031101
  2. SOMA [Concomitant]
     Indication: MUSCLE SPASMS
     Dosage: 350 MG, PRN
  3. PRILOSEC [Concomitant]
     Indication: GASTROOESOPHAGEAL REFLUX DISEASE
     Dosage: 20 MG, BID
  4. EFFEXOR [Concomitant]
     Indication: DEPRESSION
     Dosage: 150 MG, UNK
  5. TOPROL-XL [Concomitant]
     Indication: HYPERTENSION
     Dosage: 50 MG, UNK
  6. CHLORDIAZEPOXIDE HCL [Concomitant]
  7. THEOPHYLLINE [Concomitant]
  8. PREMARIN [Concomitant]
  9. NEURONTIN [Concomitant]
  10. SINGULAIR [Concomitant]

REACTIONS (14)
  - ABSCESS LIMB [None]
  - ANIMAL SCRATCH [None]
  - ANXIETY [None]
  - ATAXIA [None]
  - BACK PAIN [None]
  - CHEST PAIN [None]
  - DRUG ABUSE [None]
  - HEADACHE [None]
  - INFECTION [None]
  - LEUKOCYTOSIS [None]
  - LIVER FUNCTION TEST ABNORMAL [None]
  - MIGRAINE [None]
  - NUCLEAR MAGNETIC RESONANCE IMAGING BRAIN ABNORMAL [None]
  - RELAPSING FEVER [None]
